FAERS Safety Report 6646861-7 (Version None)
Quarter: 2010Q1

REPORT INFORMATION
  Report Type: 
  Country: None (occurrence: None)
  Receive Date: 20100323
  Receipt Date: 20100312
  Transmission Date: 20100710
  Serious: Yes (Other)
  Sender: FDA-Public Use
  Company Number: US-PFIZER INC-2009306749

PATIENT
  Sex: Male

DRUGS (3)
  1. SUTENT [Suspect]
     Indication: METASTATIC RENAL CELL CARCINOMA
     Dosage: 12.5 MG, 2X/DAY
     Dates: start: 20091123, end: 20091221
  2. XANAX [Concomitant]
  3. TRAMADOL [Concomitant]

REACTIONS (3)
  - DYSPNOEA [None]
  - HAEMORRHAGE [None]
  - LETHARGY [None]
